FAERS Safety Report 4644166-7 (Version None)
Quarter: 2005Q2

REPORT INFORMATION
  Report Type: 
  Country: None (occurrence: None)
  Receive Date: 20050425
  Receipt Date: 20050414
  Transmission Date: 20051028
  Serious: Yes (Other)
  Sender: FDA-Public Use
  Company Number: CH-GLAXOSMITHKLINE-B0378865A

PATIENT
  Age: 45 Year
  Sex: Male
  Weight: 86 kg

DRUGS (6)
  1. AUGMENTIN '125' [Suspect]
     Indication: PNEUMONIA BACTERIAL
     Dosage: 2.2G THREE TIMES PER DAY
     Route: 042
     Dates: start: 20050129, end: 20050131
  2. KLACID [Suspect]
     Indication: PNEUMONIA BACTERIAL
     Dosage: 500MG THREE TIMES PER DAY
     Route: 048
     Dates: start: 20050129, end: 20050203
  3. FRAGMIN [Suspect]
     Indication: DRUG USE FOR UNKNOWN INDICATION
     Dosage: 5000IU PER DAY
     Route: 058
     Dates: start: 20050129, end: 20050203
  4. PARACETAMOL [Suspect]
     Indication: DRUG USE FOR UNKNOWN INDICATION
     Dosage: 500MG EIGHT TIMES PER DAY
     Route: 048
     Dates: start: 20050129, end: 20050203
  5. IBUPROFEN [Concomitant]
  6. DOXYCYCLINE [Concomitant]
     Dates: start: 20050203

REACTIONS (2)
  - HEPATIC TRAUMA [None]
  - TRANSAMINASES INCREASED [None]
